FAERS Safety Report 7160006-9 (Version None)
Quarter: 2010Q4

REPORT INFORMATION
  Report Type: 
  Country: None (occurrence: None)
  Receive Date: 20101214
  Receipt Date: 20091121
  Transmission Date: 20110411
  Serious: Yes (Hospitalization)
  Sender: FDA-Public Use
  Company Number: US-AMGEN-KDL376159

PATIENT

DRUGS (2)
  1. ENBREL [Suspect]
     Indication: PSORIASIS
     Dosage: 25 MG, UNK
     Route: 058
     Dates: start: 20040101, end: 20040101
  2. EFALIZUMAB [Concomitant]
     Dosage: UNK UNK, UNK
     Dates: start: 20040101

REACTIONS (2)
  - BREAST CANCER [None]
  - DRUG INEFFECTIVE [None]
